FAERS Safety Report 6885349-5 (Version None)
Quarter: 2010Q3

REPORT INFORMATION
  Report Type: 
  Country: None (occurrence: None)
  Receive Date: 20100729
  Receipt Date: 20100722
  Transmission Date: 20110219
  Serious: Yes (Other)
  Sender: FDA-Public Use
  Company Number: US-ABBOTT-10P-163-0659490-00

PATIENT
  Sex: Female
  Weight: 95.34 kg

DRUGS (5)
  1. LUPRON DEPOT [Suspect]
     Indication: ENDOMETRIOSIS
     Dates: start: 20050101
  2. LUPRON DEPOT [Suspect]
     Dosage: DOSE UNKNOWN
     Route: 030
     Dates: start: 20100330
  3. OXYCODONE [Concomitant]
     Indication: ENDOMETRIOSIS
  4. HYDROCODONE BITARTRATE [Concomitant]
     Indication: ENDOMETRIOSIS
     Dosage: 10/325MG
  5. ZOFRAN [Concomitant]
     Indication: NAUSEA

REACTIONS (9)
  - ABDOMINAL PAIN LOWER [None]
  - DEHYDRATION [None]
  - DRUG INEFFECTIVE [None]
  - EMOTIONAL DISORDER [None]
  - MEMORY IMPAIRMENT [None]
  - SYNCOPE [None]
  - VAGINAL HAEMORRHAGE [None]
  - VOMITING [None]
  - WHITE BLOOD CELL COUNT INCREASED [None]
